FAERS Safety Report 18246825 (Version 1)
Quarter: 2020Q3

REPORT INFORMATION
  Report Type: Report from Study
  Country: CA (occurrence: CA)
  Receive Date: 20200909
  Receipt Date: 20200909
  Transmission Date: 20201103
  Serious: Yes (Other)
  Sender: FDA-Public Use
  Company Number: CA-BAUSCH-BL-2020-025560

PATIENT
  Age: 27 Year
  Sex: Male

DRUGS (1)
  1. SILIQ [Suspect]
     Active Substance: BRODALUMAB
     Indication: PSORIASIS
     Dosage: 210MG/ 1.5 ML
     Route: 058
     Dates: start: 20200902

REACTIONS (4)
  - Blood pressure decreased [Unknown]
  - Malaise [Unknown]
  - Injection site discomfort [Unknown]
  - Pallor [Unknown]

NARRATIVE: CASE EVENT DATE: 20200902
